FAERS Safety Report 13433204 (Version 2)
Quarter: 2017Q2

REPORT INFORMATION
  Report Type: Report from Study
  Country: US (occurrence: US)
  Receive Date: 20170412
  Receipt Date: 20170622
  Transmission Date: 20170830
  Serious: Yes (Hospitalization)
  Sender: FDA-Public Use
  Company Number: US-ACTELION-A-NJ2015-126263

PATIENT
  Age: 37 Year
  Sex: Female

DRUGS (1)
  1. OPSUMIT [Suspect]
     Active Substance: MACITENTAN
     Indication: PRODUCT USED FOR UNKNOWN INDICATION
     Dosage: 10 MG, QD
     Route: 048
     Dates: start: 20150827

REACTIONS (9)
  - Systemic lupus erythematosus [Unknown]
  - Dyspnoea [Unknown]
  - Influenza like illness [Not Recovered/Not Resolved]
  - Urinary tract infection [Unknown]
  - Back pain [Unknown]
  - Hypotension [Unknown]
  - Dizziness [Not Recovered/Not Resolved]
  - Malaise [Not Recovered/Not Resolved]
  - Pulmonary fibrosis [Unknown]

NARRATIVE: CASE EVENT DATE: 20151022
